FAERS Safety Report 7563189-1 (Version None)
Quarter: 2011Q2

REPORT INFORMATION
  Report Type: 
  Country: None (occurrence: None)
  Receive Date: 20110615
  Receipt Date: 20110609
  Transmission Date: 20111010
  Serious: Yes (Death)
  Sender: FDA-Public Use
  Company Number: 2010000268

PATIENT
  Age: 75 Year
  Sex: Female

DRUGS (2)
  1. TARCEVA [Suspect]
     Indication: LUNG CARCINOMA CELL TYPE UNSPECIFIED STAGE 0
     Dosage: 150 MG, UID/QD, ORAL ; 100 MG, UID/QD, ORAL
     Route: 048
     Dates: start: 20100105
  2. TARCEVA [Suspect]
     Indication: LUNG CARCINOMA CELL TYPE UNSPECIFIED STAGE 0
     Dosage: 150 MG, UID/QD, ORAL ; 100 MG, UID/QD, ORAL
     Route: 048
     Dates: start: 20100108

REACTIONS (1)
  - RASH [None]
